FAERS Safety Report 4690343-9 (Version None)
Quarter: 2005Q2

REPORT INFORMATION
  Report Type: 
  Country: None (occurrence: None)
  Receive Date: 20050615
  Receipt Date: 20050603
  Transmission Date: 20051028
  Serious: Yes (Hospitalization)
  Sender: FDA-Public Use
  Company Number: FR-ROCHE-406718

PATIENT
  Age: 93 Year
  Sex: Male

DRUGS (9)
  1. ROCEPHIN [Suspect]
     Indication: DRUG USE FOR UNKNOWN INDICATION
     Dosage: FORM REPORTED AS INJECTABLE SOLUTION.
     Route: 042
     Dates: start: 20050204, end: 20050209
  2. AMIKACIN [Suspect]
     Indication: DRUG USE FOR UNKNOWN INDICATION
     Route: 042
     Dates: start: 20050204, end: 20050207
  3. FRAXIPARINE [Concomitant]
     Route: 058
  4. DAKTARIN [Concomitant]
  5. FORTIMEL [Concomitant]
  6. OMEPRAZOLE [Concomitant]
  7. SOTALOL HCL [Concomitant]
  8. ZYRTEC [Concomitant]
  9. NOROXIN [Concomitant]
     Indication: ESCHERICHIA URINARY TRACT INFECTION
     Dates: start: 20050202, end: 20050204

REACTIONS (3)
  - DERMATITIS BULLOUS [None]
  - RENAL FAILURE [None]
  - STEVENS-JOHNSON SYNDROME [None]
